FAERS Safety Report 24151839 (Version 1)
Quarter: 2024Q3

REPORT INFORMATION
  Report Type: Spontaneous
  Country: US (occurrence: None)
  Receive Date: 20240729
  Receipt Date: 20240729
  Transmission Date: 20241016
  Serious: Yes (Hospitalization)
  Sender: Public
  Company Number: None

PATIENT
  Age: 65 Year
  Sex: Female

DRUGS (2)
  1. GAMUNEX-C [Suspect]
     Active Substance: HUMAN IMMUNOGLOBULIN G
     Indication: Multifocal motor neuropathy
     Dosage: 45 G GRAM(S) DAILY INTRAVENOUS DRIP?
     Route: 041
     Dates: start: 20240723, end: 20240723
  2. GAMUNEX-C [Suspect]
     Active Substance: HUMAN IMMUNOGLOBULIN G
     Indication: Multifocal motor neuropathy
     Dosage: ?5 G GRAM(S) DAILY INTRAVENOUS DRIP
     Route: 041
     Dates: start: 20240723, end: 20240723

REACTIONS (2)
  - Jaundice [None]
  - Haemolytic anaemia [None]

NARRATIVE: CASE EVENT DATE: 20240729
